FAERS Safety Report 6978393-0 (Version None)
Quarter: 2010Q3

REPORT INFORMATION
  Report Type: 
  Country: None (occurrence: None)
  Receive Date: 20100913
  Receipt Date: 20100902
  Transmission Date: 20110219
  Serious: Yes (Other)
  Sender: FDA-Public Use
  Company Number: JP-BRISTOL-MYERS SQUIBB COMPANY-15279276

PATIENT
  Age: 20 Year
  Sex: Female

DRUGS (3)
  1. ABILIFY [Suspect]
     Indication: SCHIZOPHRENIA
     Dosage: DOSE DECREASED TO 24 MG/DAY
     Route: 048
     Dates: start: 20100601, end: 20100817
  2. SEROQUEL [Suspect]
     Dosage: 1 DOSAGE FORM = 100-400MG TABS
     Route: 048
     Dates: start: 20100601
  3. CYMBALTA [Suspect]
     Indication: DEPRESSION
     Route: 048
     Dates: start: 20100701

REACTIONS (1)
  - LOSS OF CONSCIOUSNESS [None]
